FAERS Safety Report 7554126-4 (Version None)
Quarter: 2011Q2

REPORT INFORMATION
  Report Type: 
  Country: None (occurrence: None)
  Receive Date: 20110617
  Receipt Date: 20110531
  Transmission Date: 20111010
  Serious: Yes (Hospitalization, Other)
  Sender: FDA-Public Use
  Company Number: US-EISAI INC-E3810-04722-SPO-US

PATIENT
  Sex: Male

DRUGS (12)
  1. METHOTREXATE [Concomitant]
     Indication: RHEUMATOID ARTHRITIS
     Route: 048
  2. METOPROLOL TARTRATE [Concomitant]
     Indication: HYPERTENSION
     Route: 048
  3. FUROSEMIDE [Concomitant]
     Route: 048
  4. SIMVASTATIN [Concomitant]
     Route: 048
  5. ACIPHEX [Suspect]
     Indication: GASTROOESOPHAGEAL REFLUX DISEASE
     Route: 048
     Dates: end: 20110401
  6. GLYBURIDE [Concomitant]
     Route: 048
  7. ACETYL SALICYLIC ACID COMPOUND TAB [Concomitant]
     Indication: CARDIAC DISORDER
     Route: 048
  8. METFORMIN HCL [Concomitant]
     Route: 048
  9. REMICADE [Suspect]
     Indication: RHEUMATOID ARTHRITIS
     Route: 042
     Dates: start: 20070101
  10. FOLIC ACID [Concomitant]
     Indication: SUPPLEMENTATION THERAPY
     Route: 048
  11. LOSARTAN POTASSIUM [Concomitant]
     Indication: HYPERTENSION
     Route: 048
  12. REMICADE [Suspect]
     Route: 042

REACTIONS (5)
  - HYPERTENSION [None]
  - PAIN [None]
  - ANXIETY [None]
  - CAROTID ENDARTERECTOMY [None]
  - DRUG INEFFECTIVE [None]
